FAERS Safety Report 5977118-5 (Version None)
Quarter: 2008Q4

REPORT INFORMATION
  Report Type: 
  Country: None (occurrence: None)
  Receive Date: 20081203
  Receipt Date: 20081121
  Transmission Date: 20090506
  Serious: Yes (Hospitalization)
  Sender: FDA-Public Use
  Company Number: US-ROCHE-598853

PATIENT
  Age: 79 Year
  Sex: Female

DRUGS (6)
  1. BONIVA [Suspect]
     Indication: OSTEOPOROSIS
     Route: 048
     Dates: start: 20080201
  2. ZEGERID [Concomitant]
     Dosage: DRUG REPORTED: ZEGERD
  3. LOVASTATIN [Concomitant]
  4. SYNTHROID [Concomitant]
  5. MULTIVITAMIN NOS [Concomitant]
  6. XALATAN [Concomitant]
     Dosage: DRUG: XALATAN EYE DROPS

REACTIONS (3)
  - ARTHRALGIA [None]
  - COMPRESSION FRACTURE [None]
  - PERIPHERAL NERVE OPERATION [None]
